FAERS Safety Report 4808411-7 (Version None)
Quarter: 2005Q4

REPORT INFORMATION
  Report Type: 
  Country: None (occurrence: None)
  Receive Date: 20051021
  Receipt Date: 20040221
  Transmission Date: 20060501
  Serious: No
  Sender: FDA-Public Use
  Company Number: JP_040202694

PATIENT
  Age: 51 Year
  Sex: Female

DRUGS (14)
  1. ZYPREXA [Suspect]
     Indication: SCHIZOPHRENIA
     Dosage: 5 MG DAY
     Dates: start: 20030927, end: 20040216
  2. BARNETIL (SULTOPRIDE) [Concomitant]
  3. HALOPERIDOL [Concomitant]
  4. AKINETON [Concomitant]
  5. DIAZEPAM [Concomitant]
  6. VALERIN (VALPROATE SODIUM) [Concomitant]
  7. ZOLPIDEM TARTRATE [Concomitant]
  8. NITRAZEPAM [Concomitant]
  9. DESYREL [Concomitant]
  10. LAXOBERON (SODIUM PICOSULFATE) [Concomitant]
  11. HIRNAMIN (LEVOMEPROMAZINE) [Concomitant]
  12. EFFORTIL (ETILEFRINE HYDROCHLORIDE) [Concomitant]
  13. VAGOSTIGMIN #1 (NEOSTIGMINE METILSULFATE) [Concomitant]
  14. MAGNESIUM OXIDE [Concomitant]

REACTIONS (4)
  - HAEMATOCRIT DECREASED [None]
  - HAEMOGLOBIN DECREASED [None]
  - RED BLOOD CELL COUNT DECREASED [None]
  - WHITE BLOOD CELL COUNT DECREASED [None]
